FAERS Safety Report 18925696 (Version 4)
Quarter: 2021Q1

REPORT INFORMATION
  Report Type: Report from Study
  Country: IT (occurrence: IT)
  Receive Date: 20210223
  Receipt Date: 20210326
  Transmission Date: 20210420
  Serious: Yes (Other)
  Sender: FDA-Public Use
  Company Number: IT-ROCHE-2768692

PATIENT
  Age: 57 Year
  Sex: Female
  Weight: 53 kg

DRUGS (7)
  1. HYALISTIL [Concomitant]
     Dates: start: 20191129
  2. AKYNZEO [Concomitant]
     Active Substance: NETUPITANT\PALONOSETRON HYDROCHLORIDE
     Dates: start: 20210113, end: 20210113
  3. TISOTUMAB VEDOTIN. [Suspect]
     Active Substance: TISOTUMAB VEDOTIN
     Indication: CERVIX CANCER METASTATIC
     Route: 042
     Dates: start: 20191109, end: 20210309
  4. BEVACIZUMAB. [Suspect]
     Active Substance: BEVACIZUMAB
     Indication: CERVIX CANCER METASTATIC
     Dosage: SOLUTION FOR INFUSION
     Route: 042
     Dates: start: 20191129, end: 20210309
  5. TISOTUMAB VEDOTIN. [Suspect]
     Active Substance: TISOTUMAB VEDOTIN
     Dosage: SINCE 12?NOV?2020, CYCLE 17 DAY 1 (C17D1), THE PATIENT WAS RECEIVING TISOTUMAB?VEDOTIN AT REDUCED DO
     Route: 042
     Dates: start: 20201112, end: 20210113
  6. AMERICAN GINSENG. [Concomitant]
     Active Substance: AMERICAN GINSENG
     Dosage: ONGOING
     Dates: start: 20200220
  7. TRIMETON [Concomitant]
     Active Substance: CHLORPHENIRAMINE MALEATE
     Dates: start: 20200109

REACTIONS (1)
  - Ulcerative keratitis [Recovered/Resolved]

NARRATIVE: CASE EVENT DATE: 20210202
